FAERS Safety Report 21260334 (Version 1)
Quarter: 2022Q3

REPORT INFORMATION
  Report Type: Report from Study
  Country: US (occurrence: US)
  Receive Date: 20220826
  Receipt Date: 20220826
  Transmission Date: 20221027
  Serious: No
  Sender: FDA-Public Use
  Company Number: US-NOVARTISTESTPH-NVSC2022US192122

PATIENT
  Sex: Female

DRUGS (2)
  1. COSENTYX [Suspect]
     Active Substance: SECUKINUMAB
     Indication: Product used for unknown indication
     Dosage: 150 MG, QMO (ESPN REPORT)
     Route: 065
     Dates: start: 202202
  2. COSENTYX [Suspect]
     Active Substance: SECUKINUMAB
     Dosage: 300 MILLIGRAM PER MILLILITRE
     Route: 065

REACTIONS (1)
  - Therapeutic product effect decreased [Unknown]
